FAERS Safety Report 7787002-2 (Version None)
Quarter: 2011Q3

REPORT INFORMATION
  Report Type: 
  Country: None (occurrence: None)
  Receive Date: 20110928
  Receipt Date: 20110928
  Transmission Date: 20111222
  Serious: Yes (Other)
  Sender: FDA-Public Use
  Company Number: None

PATIENT
  Sex: Male
  Weight: 85 kg

DRUGS (7)
  1. LOPRESSOR [Concomitant]
  2. K PHOS NEUTRAL [Concomitant]
  3. FLOMAX [Concomitant]
  4. SENSIPAR [Concomitant]
  5. BELATACEPT 250 MGS/VIAL BRISTOL-MYERS SQUIBBS [Suspect]
     Indication: IMMUNOSUPPRESSION
     Dosage: 5 MGS/KG
     Dates: start: 20091217
  6. FELODIPINE [Concomitant]
  7. ZOCOR [Concomitant]

REACTIONS (2)
  - POLYOMAVIRUS TEST POSITIVE [None]
  - KIDNEY TRANSPLANT REJECTION [None]
